FAERS Safety Report 8794827 (Version 1)
Quarter: 2012Q4

REPORT INFORMATION
  Report Type: 
  Country: PL (occurrence: PL)
  Receive Date: 20120917
  Receipt Date: 20120917
  Transmission Date: 20130627
  Serious: Yes (Other)
  Sender: FDA-Public Use
  Company Number: PL-BAXTER-2012BAX017099

PATIENT
  Age: 36 Year
  Sex: Female

DRUGS (3)
  1. ENDOXAN [Suspect]
     Indication: SLE
     Route: 042
  2. PREDNISONE [Suspect]
     Indication: SLE
  3. ACETYLSALICYLIC ACID [Suspect]
     Indication: SLE

REACTIONS (2)
  - Foetal death [Recovered/Resolved]
  - Maternal exposure before pregnancy [Recovered/Resolved]
